FAERS Safety Report 19937922 (Version 2)
Quarter: 2021Q4

REPORT INFORMATION
  Report Type: Spontaneous
  Country: EG (occurrence: EG)
  Receive Date: 20211011
  Receipt Date: 20211019
  Transmission Date: 20220303
  Serious: Yes (Other)
  Sender: FDA-Public Use
  Company Number: EG-NOVOPROD-853331

PATIENT
  Age: 780 Month
  Sex: Male
  Weight: 80 kg

DRUGS (5)
  1. INSULIN HUMAN [Suspect]
     Active Substance: INSULIN HUMAN
     Dosage: 10-15 IU BREAKFAST AND 30 IU LUNCH (DOSE DECREASE)
     Route: 058
  2. INSULIN HUMAN [Suspect]
     Active Substance: INSULIN HUMAN
     Indication: Diabetes mellitus
     Dosage: 60 IU, QD 20 IU/BREAKFAST AND 40 IU/LUNCH
     Route: 058
  3. APIFORTYL [Concomitant]
     Indication: Supplementation therapy
     Dosage: BREAKFAST, 3 YEARS AGO AND ONGOING
     Route: 048
  4. NEUROVIT [CYANOCOBALAMIN;IBUPROFEN;PYRIDOXINE HYDROCHLORIDE;THIAMINE H [Concomitant]
     Indication: Supplementation therapy
     Dosage: 25 YEARS AGO AND ONGOING.
     Route: 048
  5. NOFLU [CHLORPHENAMINE MALEATE;PARACETAMOL;PHENYLPROPANOLAMINE HYDROCHL [Concomitant]
     Indication: Capillary disorder
     Dosage: UNK

REACTIONS (4)
  - Vitreous haemorrhage [Not Recovered/Not Resolved]
  - Hypoglycaemia [Not Recovered/Not Resolved]
  - Blood glucose increased [Unknown]
  - Inappropriate schedule of product administration [Unknown]
